FAERS Safety Report 19578456 (Version 1)
Quarter: 2021Q3

REPORT INFORMATION
  Report Type: Spontaneous
  Country: CN (occurrence: CN)
  Receive Date: 20210719
  Receipt Date: 20210719
  Transmission Date: 20211014
  Serious: Yes (Death)
  Sender: FDA-Public Use
  Company Number: CN-PFIZER INC-2021883398

PATIENT
  Age: 49 Year
  Sex: Male

DRUGS (5)
  1. MEROPENEM. [Suspect]
     Active Substance: MEROPENEM
     Indication: BURKHOLDERIA CEPACIA COMPLEX INFECTION
     Dosage: UNK
  2. AMPHOTERICIN B. [Concomitant]
     Active Substance: AMPHOTERICIN B
     Indication: FUNGAL INFECTION
     Dosage: 50 MG, DAILY
  3. TIGECYCLINE. [Suspect]
     Active Substance: TIGECYCLINE
     Indication: BURKHOLDERIA CEPACIA COMPLEX INFECTION
     Dosage: UNK
  4. VORICONAZOLE. [Concomitant]
     Active Substance: VORICONAZOLE
     Indication: FUNGAL INFECTION
     Dosage: UNK
  5. COTRIMOXAZOLE [Suspect]
     Active Substance: SULFAMETHOXAZOLE\TRIMETHOPRIM
     Indication: BURKHOLDERIA CEPACIA COMPLEX INFECTION
     Dosage: UNK

REACTIONS (1)
  - Drug ineffective [Fatal]
